FAERS Safety Report 24757209 (Version 1)
Quarter: 2024Q4

REPORT INFORMATION
  Report Type: Spontaneous
  Country: US (occurrence: US)
  Receive Date: 20241220
  Receipt Date: 20241220
  Transmission Date: 20250115
  Serious: Yes (Other)
  Sender: APOTEX
  Company Number: US-APOTEX-2024AP019883

PATIENT
  Age: 43 Year
  Sex: Female

DRUGS (4)
  1. DEXAMETHASONE [Suspect]
     Active Substance: DEXAMETHASONE
     Indication: Hypoglycaemia
     Dosage: UNK
     Route: 065
  2. PASIREOTIDE [Suspect]
     Active Substance: PASIREOTIDE
     Indication: Hypoglycaemia
     Dosage: UNK
     Route: 065
  3. EVEROLIMUS [Suspect]
     Active Substance: EVEROLIMUS
     Indication: Hypoglycaemia
     Dosage: UNK
     Route: 065
  4. DEXTROSE [Suspect]
     Active Substance: DEXTROSE MONOHYDRATE
     Indication: Hypoglycaemia
     Dosage: UP TO 100ML/HR OF D50
     Route: 065

REACTIONS (2)
  - Acute kidney injury [Recovering/Resolving]
  - Oedema [Recovering/Resolving]
